FAERS Safety Report 13762868 (Version 1)
Quarter: 2017Q3

REPORT INFORMATION
  Report Type: Report from Study
  Country: US (occurrence: US)
  Receive Date: 20170718
  Receipt Date: 20170718
  Transmission Date: 20171127
  Serious: Yes (Death)
  Sender: FDA-Public Use
  Company Number: US-BION-006468

PATIENT
  Sex: Female

DRUGS (9)
  1. METHYLPHENIDATE. [Suspect]
     Active Substance: METHYLPHENIDATE
  2. IBUPROFEN UNKNOWN PRODUCT [Suspect]
     Active Substance: IBUPROFEN
  3. MAGNESIUM CITRATE. [Suspect]
     Active Substance: MAGNESIUM CITRATE
  4. DIPHENHYDRAMINE. [Suspect]
     Active Substance: DIPHENHYDRAMINE
  5. PARACETAMOL [Suspect]
     Active Substance: ACETAMINOPHEN
  6. DEXTROMETHORPHAN [Suspect]
     Active Substance: DEXTROMETHORPHAN
  7. PHENOTHIAZINE [Suspect]
     Active Substance: PHENOTHIAZINE
  8. LOPERAMIDE UNKNOWN PRODUCT [Suspect]
     Active Substance: LOPERAMIDE
  9. NAPROXEN UNKNOWN PRODUCT [Suspect]
     Active Substance: NAPROXEN

REACTIONS (2)
  - Intentional product misuse [Fatal]
  - Death [Fatal]
